FAERS Safety Report 10060419 (Version 3)
Quarter: 2014Q2

REPORT INFORMATION
  Report Type: Report from Study
  Country: CA (occurrence: CA)
  Receive Date: 20140404
  Receipt Date: 20140410
  Transmission Date: 20141212
  Serious: Yes (Death)
  Sender: FDA-Public Use
  Company Number: CA-UCBSA-099170

PATIENT
  Age: 78 Year
  Sex: Male
  Weight: 86.36 kg

DRUGS (2)
  1. CIMZIA [Suspect]
     Indication: RHEUMATOID ARTHRITIS
     Route: 058
     Dates: start: 20111117, end: 20140327
  2. CIMZIA [Suspect]
     Indication: RHEUMATOID ARTHRITIS
     Dosage: WKS- 0-2-4
     Route: 058
     Dates: start: 20110922, end: 20111020

REACTIONS (3)
  - Death [Fatal]
  - Pulmonary embolism [Unknown]
  - Anaemia [Not Recovered/Not Resolved]
